FAERS Safety Report 4967219-2 (Version None)
Quarter: 2006Q2

REPORT INFORMATION
  Report Type: 
  Country: None (occurrence: None)
  Receive Date: 20060410
  Receipt Date: 20050725
  Transmission Date: 20061013
  Serious: Yes (Hospitalization)
  Sender: FDA-Public Use
  Company Number: PHBS2005JP10911

PATIENT
  Age: 47 Year
  Sex: Female

DRUGS (5)
  1. GLEEVEC [Suspect]
     Indication: CHRONIC MYELOID LEUKAEMIA
     Dosage: 2000 MG, ONCE/SINGLE
     Route: 048
     Dates: start: 20050725, end: 20050725
  2. GLEEVEC [Suspect]
     Dosage: 400 MG/DAY
     Route: 048
     Dates: start: 20020101, end: 20021001
  3. GLEEVEC [Suspect]
     Dosage: 200 MG/D
     Route: 048
     Dates: start: 20021001
  4. HALCION [Suspect]
     Dosage: 3.5 MG, ONCE/SINGLE
     Route: 048
     Dates: start: 20050725, end: 20050725
  5. LENDORMIN [Suspect]
     Dosage: 12.5 MG, ONCE/SINGLE
     Route: 048
     Dates: start: 20050725, end: 20050725

REACTIONS (8)
  - BLOOD CREATINE PHOSPHOKINASE INCREASED [None]
  - DEPRESSED LEVEL OF CONSCIOUSNESS [None]
  - DEPRESSION [None]
  - INTENTIONAL OVERDOSE [None]
  - MYALGIA [None]
  - NAUSEA [None]
  - OEDEMA [None]
  - SUICIDE ATTEMPT [None]
